FAERS Safety Report 7464399-4 (Version None)
Quarter: 2011Q2

REPORT INFORMATION
  Report Type: 
  Country: None (occurrence: None)
  Receive Date: 20110509
  Receipt Date: 20110504
  Transmission Date: 20111010
  Serious: Yes (Other)
  Sender: FDA-Public Use
  Company Number: US-PFIZER INC-2011096727

PATIENT
  Sex: Female

DRUGS (2)
  1. NICODERM [Suspect]
     Dosage: UNK
  2. CHANTIX [Suspect]
     Dosage: UNK

REACTIONS (4)
  - SOMNOLENCE [None]
  - HYPERHIDROSIS [None]
  - LIP DISORDER [None]
  - SWOLLEN TONGUE [None]
